FAERS Safety Report 14532508 (Version 1)
Quarter: 2018Q1

REPORT INFORMATION
  Report Type: Spontaneous
  Country: US (occurrence: US)
  Receive Date: 20180213
  Receipt Date: 20180213
  Transmission Date: 20180509
  Serious: Yes (Hospitalization)
  Sender: FDA-Public Use
  Company Number: None

PATIENT
  Age: 56 Year
  Sex: Female

DRUGS (2)
  1. MYCOPHENOLATE 500MG TABLETS [Suspect]
     Active Substance: MYCOPHENOLIC ACID
     Indication: PULMONARY HYPERTENSION
     Route: 048
     Dates: start: 20160411
  2. OPSUMIT [Concomitant]
     Active Substance: MACITENTAN

REACTIONS (2)
  - Drug dose omission [None]
  - Hospitalisation [None]
